FAERS Safety Report 8082500-9 (Version None)
Quarter: 2012Q1

REPORT INFORMATION
  Report Type: 
  Country: None (occurrence: None)
  Receive Date: 20120127
  Receipt Date: 20110216
  Transmission Date: 20120608
  Serious: No
  Sender: FDA-Public Use
  Company Number: US-ABBOTT-11P-163-0706530-00

PATIENT
  Sex: Female
  Weight: 68.1 kg

DRUGS (7)
  1. AVAPRO [Concomitant]
     Indication: HYPERTENSION
  2. TOPROL-XL [Concomitant]
     Indication: HYPERTENSION
  3. PRILOSEC [Concomitant]
     Indication: PROPHYLAXIS
  4. HUMIRA [Suspect]
     Indication: RHEUMATOID ARTHRITIS
     Dates: start: 20080101
  5. METHOTREXATE [Concomitant]
     Indication: RHEUMATOID ARTHRITIS
  6. ZOCOR [Concomitant]
     Indication: BLOOD CHOLESTEROL INCREASED
  7. FOLIC ACID [Concomitant]
     Indication: VITAMIN SUPPLEMENTATION

REACTIONS (3)
  - INJECTION SITE EXTRAVASATION [None]
  - INJECTION SITE VESICLES [None]
  - INJECTION SITE PAIN [None]
